FAERS Safety Report 5811929-1 (Version None)
Quarter: 2008Q3

REPORT INFORMATION
  Report Type: 
  Country: None (occurrence: None)
  Receive Date: 20080716
  Receipt Date: 20080709
  Transmission Date: 20090109
  Serious: Yes (Other)
  Sender: FDA-Public Use
  Company Number: US-SANOFI-SYNTHELABO-A03200802734

PATIENT

DRUGS (1)
  1. ELOXATIN [Suspect]
     Indication: HEPATIC NEOPLASM
     Route: 042

REACTIONS (1)
  - HEPATIC NECROSIS [None]
